FAERS Safety Report 24166610 (Version 1)
Quarter: 2024Q3

REPORT INFORMATION
  Report Type: Spontaneous
  Country: SE (occurrence: SE)
  Receive Date: 20240802
  Receipt Date: 20240802
  Transmission Date: 20241017
  Serious: Yes (Disabling)
  Sender: RANBAXY
  Company Number: SE-SEMPA-2024-004066

PATIENT
  Age: 34 Year
  Sex: Male

DRUGS (2)
  1. SERTRALINE [Suspect]
     Active Substance: SERTRALINE HYDROCHLORIDE
     Indication: Burnout syndrome
     Dosage: UNK
     Route: 048
     Dates: start: 20150601, end: 20180315
  2. MIRTAZAPINE [Suspect]
     Active Substance: MIRTAZAPINE
     Indication: Depression
     Dosage: UNK
     Route: 048
     Dates: start: 20150901, end: 20151031

REACTIONS (1)
  - Sexual dysfunction [Not Recovered/Not Resolved]
